FAERS Safety Report 6932783-0 (Version None)
Quarter: 2010Q3

REPORT INFORMATION
  Report Type: 
  Country: None (occurrence: None)
  Receive Date: 20100819
  Receipt Date: 20100811
  Transmission Date: 20110219
  Serious: Yes (Hospitalization, Other)
  Sender: FDA-Public Use
  Company Number: GB-ABBOTT-10P-167-0643301-00

PATIENT
  Sex: Male
  Weight: 82.5 kg

DRUGS (6)
  1. HUMIRA [Suspect]
     Indication: PSORIASIS
     Dates: start: 20100201
  2. HUMIRA [Suspect]
     Route: 058
     Dates: start: 20090401, end: 20100301
  3. PERINDOPRIL [Concomitant]
     Indication: HYPERTENSION
     Route: 048
  4. TYROXINE [Concomitant]
     Indication: HYPOTHYROIDISM
     Route: 048
  5. ASPIRIN [Concomitant]
     Indication: MYOCARDIAL ISCHAEMIA
     Route: 048
  6. ATORVASTATIN CALCIUM [Concomitant]
     Indication: HYPERCHOLESTEROLAEMIA
     Route: 048

REACTIONS (4)
  - BLINDNESS [None]
  - CORNEAL EROSION [None]
  - DRY EYE [None]
  - EYE INFECTION [None]
